FAERS Safety Report 18239328 (Version 2)
Quarter: 2020Q3

REPORT INFORMATION
  Report Type: Report from Study
  Country: NL (occurrence: NL)
  Receive Date: 20200907
  Receipt Date: 20200914
  Transmission Date: 20201103
  Serious: Yes (Hospitalization, Other)
  Sender: FDA-Public Use
  Company Number: NVSC2020NL243014

PATIENT
  Sex: Female

DRUGS (3)
  1. SANDOSTATINE LAR [Suspect]
     Active Substance: OCTREOTIDE ACETATE
     Indication: NEUROENDOCRINE TUMOUR
     Dosage: Q3W  (1.00 X PER 3 WEKEN)
     Route: 030
  2. SANDOSTATINE LAR [Suspect]
     Active Substance: OCTREOTIDE ACETATE
     Dosage: UNK
     Route: 065
  3. SANDOSTATINE LAR [Suspect]
     Active Substance: OCTREOTIDE ACETATE

REACTIONS (4)
  - Product dose omission issue [Unknown]
  - Ascites [Unknown]
  - Product use issue [Unknown]
  - General physical health deterioration [Unknown]
